FAERS Safety Report 5341626-0 (Version None)
Quarter: 2007Q2

REPORT INFORMATION
  Report Type: 
  Country: None (occurrence: None)
  Receive Date: 20070530
  Receipt Date: 20070302
  Transmission Date: 20071010
  Serious: Yes (Other)
  Sender: FDA-Public Use
  Company Number: CHNY2007CA01167

PATIENT
  Age: 53 Year
  Sex: Female

DRUGS (4)
  1. NICOTINE [Suspect]
     Indication: SMOKING CESSATION THERAPY
     Dosage: 14 MG, QD, TRANSDERMAL
     Route: 062
     Dates: start: 20070201, end: 20070226
  2. NICOTINE [Suspect]
     Indication: SMOKING CESSATION THERAPY
     Dosage: 14 MG, QD, TRANSDERMAL
     Route: 062
     Dates: start: 20070301, end: 20070302
  3. METFORMIN HCL [Concomitant]
  4. LAMOTRIGINE [Concomitant]

REACTIONS (4)
  - GASTRIC ULCER [None]
  - HEADACHE [None]
  - PYREXIA [None]
  - STOMACH DISCOMFORT [None]
